FAERS Safety Report 24881509 (Version 1)
Quarter: 2025Q1

REPORT INFORMATION
  Report Type: Spontaneous
  Country: DK (occurrence: DK)
  Receive Date: 20250124
  Receipt Date: 20250124
  Transmission Date: 20250408
  Serious: No
  Sender: ALKEM
  Company Number: DK-ALKEM LABORATORIES LIMITED-DK-ALKEM-2024-26869

PATIENT
  Age: 46 Year
  Sex: Female

DRUGS (2)
  1. ESLICARBAZEPINE [Suspect]
     Active Substance: ESLICARBAZEPINE
     Indication: Partial seizures
     Dosage: 1200 MILLIGRAM, QD
     Route: 065
  2. CITALOPRAM [Concomitant]
     Active Substance: CITALOPRAM
     Indication: Product used for unknown indication
     Dosage: 10 MILLIGRAM, QD
     Route: 065

REACTIONS (1)
  - Hyponatraemia [Recovered/Resolved]
